FAERS Safety Report 6506152-1 (Version None)
Quarter: 2009Q4

REPORT INFORMATION
  Report Type: 
  Country: None (occurrence: None)
  Receive Date: 20091218
  Receipt Date: 20091212
  Transmission Date: 20100525
  Serious: No
  Sender: FDA-Public Use
  Company Number: US-B.I. PHARMACEUTICALS,INC./RIDGEFIELD-2009-BP-14396BP

PATIENT
  Sex: Female

DRUGS (3)
  1. ZANTAC 150 [Suspect]
     Indication: GASTRIC DISORDER
     Dosage: 300 MG
     Route: 048
     Dates: start: 20091211
  2. PHENOBARBITAL [Concomitant]
     Indication: HEAD INJURY
  3. SYNTHROID [Concomitant]
     Indication: HYPOTHYROIDISM

REACTIONS (4)
  - BACK PAIN [None]
  - DYSPEPSIA [None]
  - ERUCTATION [None]
  - MALAISE [None]
